FAERS Safety Report 16264458 (Version 1)
Quarter: 2019Q2

REPORT INFORMATION
  Report Type: Spontaneous
  Country: US (occurrence: US)
  Receive Date: 20190502
  Receipt Date: 20190502
  Transmission Date: 20190711
  Serious: No
  Sender: FDA-Public Use
  Company Number: US-PFIZER INC-2019184348

PATIENT
  Age: 71 Year
  Sex: Female
  Weight: 90.7 kg

DRUGS (1)
  1. LYRICA [Suspect]
     Active Substance: PREGABALIN
     Indication: NEURALGIA
     Dosage: 150 MG, 2X/DAY (75 MG CAPSULE, TAKE 2 CAPSULES IN THE MORNING AND 2 CAPSULES AT NIGHT)
     Route: 048
     Dates: start: 2009

REACTIONS (2)
  - Therapeutic product effect incomplete [Unknown]
  - Influenza like illness [Unknown]
